FAERS Safety Report 23659256 (Version 1)
Quarter: 2024Q1

REPORT INFORMATION
  Report Type: Spontaneous
  Country: US (occurrence: US)
  Receive Date: 20240321
  Receipt Date: 20240321
  Transmission Date: 20240409
  Serious: Yes (Hospitalization, Other)
  Sender: FDA-Public Use
  Company Number: US-JNJFOC-20240344882

PATIENT
  Age: 52 Year
  Sex: Female
  Weight: 108.8 kg

DRUGS (32)
  1. OPSUMIT [Suspect]
     Active Substance: MACITENTAN
     Indication: Product used for unknown indication
     Route: 048
     Dates: end: 202402
  2. REMODULIN [Suspect]
     Active Substance: TREPROSTINIL
     Indication: Pulmonary arterial hypertension
     Route: 058
     Dates: start: 20240209, end: 202402
  3. REMODULIN [Suspect]
     Active Substance: TREPROSTINIL
     Dosage: (SELF FILL WITH 1.7 ML PER CASSETTE; PUMP RATE OF 17 MCL PER HOUR)
     Route: 058
     Dates: start: 202402
  4. REMODULIN [Suspect]
     Active Substance: TREPROSTINIL
     Dosage: (SELF-FILL WITH 2.2 ML PER CASSETTE AT THE PUMP RATE OF 23 MCL PER HOUR)
     Route: 058
     Dates: start: 202402
  5. OZEMPIC [Concomitant]
     Active Substance: SEMAGLUTIDE
  6. ACETAMINOPHEN [Concomitant]
     Active Substance: ACETAMINOPHEN
  7. HUMULIN R [Concomitant]
     Active Substance: INSULIN HUMAN
  8. SIMVASTATIN [Concomitant]
     Active Substance: SIMVASTATIN
  9. SODIUM CHLORIDE [Concomitant]
     Active Substance: SODIUM CHLORIDE
  10. KETAMINE HYDROCHLORIDE [Concomitant]
     Active Substance: KETAMINE HYDROCHLORIDE
  11. LECITHIN [Concomitant]
     Active Substance: LECITHIN
  12. ALBUTEROL SULFATE [Concomitant]
     Active Substance: ALBUTEROL SULFATE
  13. ASPIRIN [Concomitant]
     Active Substance: ASPIRIN
  14. TADALAFIL [Concomitant]
     Active Substance: TADALAFIL
  15. VITAMIN D2 [Concomitant]
     Active Substance: ERGOCALCIFEROL
  16. TRAMADOL HCL [Concomitant]
     Active Substance: TRAMADOL HYDROCHLORIDE
  17. CLONIDINE [Concomitant]
     Active Substance: CLONIDINE
  18. KETOPROFEN [Concomitant]
     Active Substance: KETOPROFEN
  19. LIDOCAINE [Concomitant]
     Active Substance: LIDOCAINE
  20. SPIRONOLACTONE [Concomitant]
     Active Substance: SPIRONOLACTONE
  21. OXYGEN [Concomitant]
     Active Substance: OXYGEN
  22. DIGOXIN [Concomitant]
     Active Substance: DIGOXIN
  23. FARXIGA [Concomitant]
     Active Substance: DAPAGLIFLOZIN PROPANEDIOL
  24. AMITRIPTYLINE [Concomitant]
     Active Substance: AMITRIPTYLINE
  25. GABAPENTIN [Concomitant]
     Active Substance: GABAPENTIN
  26. POLOXAMER [Concomitant]
     Active Substance: POLOXAMER
  27. ONDANSETRON HYDROCHLORIDE [Concomitant]
     Active Substance: ONDANSETRON HYDROCHLORIDE
  28. ROPINIROLE HYDROCHLORIDE [Concomitant]
     Active Substance: ROPINIROLE HYDROCHLORIDE
  29. TORSEMIDE [Concomitant]
     Active Substance: TORSEMIDE
  30. DULOXETINE HYDROCHLORIDE [Concomitant]
     Active Substance: DULOXETINE HYDROCHLORIDE
  31. METFORMIN HYDROCHLORIDE [Concomitant]
     Active Substance: METFORMIN HYDROCHLORIDE
  32. VITAMIN D3 [Concomitant]
     Active Substance: CHOLECALCIFEROL

REACTIONS (1)
  - Cardiac failure [Unknown]

NARRATIVE: CASE EVENT DATE: 20240227
